FAERS Safety Report 4981150-8 (Version None)
Quarter: 2006Q2

REPORT INFORMATION
  Report Type: 
  Country: None (occurrence: None)
  Receive Date: 20060424
  Receipt Date: 20051123
  Transmission Date: 20061013
  Serious: Yes (Life-Threatening, Hospitalization, Other)
  Sender: FDA-Public Use
  Company Number: US-BRISTOL-MYERS SQUIBB COMPANY-13193982

PATIENT
  Age: 69 Year
  Sex: Male

DRUGS (7)
  1. ERBITUX [Suspect]
     Indication: LUNG CANCER METASTATIC
     Route: 042
     Dates: start: 20051121, end: 20051121
  2. CARBOPLATIN [Suspect]
     Route: 042
     Dates: start: 20051121, end: 20051121
  3. DOCETAXEL [Suspect]
     Indication: LUNG CANCER METASTATIC
     Route: 042
     Dates: start: 20051121, end: 20051121
  4. BENADRYL [Concomitant]
     Indication: PREMEDICATION
  5. FAMOTIDINE [Concomitant]
     Indication: PREMEDICATION
  6. DEXAMETHASONE [Concomitant]
  7. ZOPRIN [Concomitant]
     Indication: PREMEDICATION

REACTIONS (20)
  - ABASIA [None]
  - ABDOMINAL PAIN [None]
  - ANOREXIA [None]
  - ASTHENIA [None]
  - DEHYDRATION [None]
  - DEPRESSED LEVEL OF CONSCIOUSNESS [None]
  - DIARRHOEA [None]
  - DIZZINESS [None]
  - HEART RATE INCREASED [None]
  - HEPATIC ENZYME INCREASED [None]
  - HYPERSENSITIVITY [None]
  - HYPOKALAEMIA [None]
  - HYPOTENSION [None]
  - LEUKOPENIA [None]
  - ORAL INTAKE REDUCED [None]
  - OXYGEN SATURATION DECREASED [None]
  - REFUSAL OF TREATMENT BY PATIENT [None]
  - RENAL FAILURE [None]
  - RENAL FAILURE ACUTE [None]
  - RESPIRATORY DISTRESS [None]
